FAERS Safety Report 10920574 (Version 5)
Quarter: 2015Q3

REPORT INFORMATION
  Report Type: Report from Study
  Country: IT (occurrence: IT)
  Receive Date: 20150317
  Receipt Date: 20150810
  Transmission Date: 20151125
  Serious: Yes (Death, Life-Threatening, Hospitalization)
  Sender: FDA-Public Use
  Company Number: PHHO2014IT008466

PATIENT
  Age: 60 Year
  Sex: Female
  Weight: 63 kg

DRUGS (9)
  1. NOVONORM [Concomitant]
     Active Substance: REPAGLINIDE
     Indication: HYPERGLYCAEMIA
     Dosage: 1 COX 2 LOSE
     Route: 065
     Dates: start: 201501
  2. AFINITOR [Suspect]
     Active Substance: EVEROLIMUS
     Indication: NEUROENDOCRINE CARCINOMA
     Dosage: 5 MG, UNK
     Route: 048
     Dates: start: 20140328, end: 20150125
  3. CALCIUM [Concomitant]
     Active Substance: CALCIUM
     Indication: PRODUCT USED FOR UNKNOWN INDICATION
     Route: 065
  4. SIDERAL [Concomitant]
     Indication: ANAEMIA
     Dosage: 1 DF, UNK
     Route: 048
     Dates: start: 20140609
  5. SOM230 [Suspect]
     Active Substance: PASIREOTIDE
     Indication: NEUROENDOCRINE CARCINOMA
     Dosage: 40 MG, UNK
     Route: 030
     Dates: start: 20140328
  6. SOM230 [Suspect]
     Active Substance: PASIREOTIDE
     Dosage: UNK
     Route: 030
  7. ENTEROGERMINA [Concomitant]
     Active Substance: BACILLUS SUBTILIS
     Indication: ENTERITIS
     Dosage: 1 FL BID
     Route: 048
     Dates: start: 20140411
  8. FENTANIL [Concomitant]
     Active Substance: FENTANYL
     Indication: BONE PAIN
     Dosage: 2X100 UG, Q72H
     Route: 065
     Dates: start: 20140331
  9. PECFENT [Concomitant]
     Active Substance: FENTANYL CITRATE
     Indication: BONE PAIN
     Dosage: 1 DF (1 PUFF IF NECESSARY)
     Route: 055
     Dates: start: 20140331

REACTIONS (9)
  - Hypercreatininaemia [Not Recovered/Not Resolved]
  - Loss of consciousness [Recovered/Resolved]
  - Depression [Not Recovered/Not Resolved]
  - Anaemia [Recovered/Resolved]
  - Anaemia [Recovering/Resolving]
  - Anaemia [Recovered/Resolved]
  - Ascites [Recovered/Resolved]
  - Malignant neoplasm progression [Fatal]
  - Anaemia [Recovered/Resolved]

NARRATIVE: CASE EVENT DATE: 20140528
